FAERS Safety Report 18125062 (Version 1)
Quarter: 2020Q3

REPORT INFORMATION
  Report Type: Spontaneous
  Country: CN (occurrence: CN)
  Receive Date: 20200807
  Receipt Date: 20200807
  Transmission Date: 20201103
  Serious: Yes (Hospitalization, Other)
  Sender: FDA-Public Use
  Company Number: CN-PFIZER INC-2020297241

PATIENT
  Age: 90 Year
  Sex: Female

DRUGS (1)
  1. CELEBREX [Suspect]
     Active Substance: CELECOXIB
     Indication: ARTHRALGIA
     Dosage: 1 DF
     Route: 048

REACTIONS (4)
  - Prescription drug used without a prescription [Unknown]
  - Haemorrhage [Unknown]
  - Platelet count decreased [Not Recovered/Not Resolved]
  - Rash macular [Unknown]
